FAERS Safety Report 9675722 (Version 1)
Quarter: 2013Q4

REPORT INFORMATION
  Report Type: Spontaneous
  Country: US (occurrence: US)
  Receive Date: 20131107
  Receipt Date: 20131107
  Transmission Date: 20140711
  Serious: Yes (Other)
  Sender: FDA-Public Use
  Company Number: US-JNJFOC-20131102410

PATIENT
  Age: 15 Year
  Sex: Male
  Weight: 65.77 kg

DRUGS (3)
  1. METHYLPHENIDATE [Suspect]
     Indication: PRODUCT USED FOR UNKNOWN INDICATION
     Route: 048
  2. CELEXA [Concomitant]
     Indication: ANXIETY
     Route: 048
  3. CITALOPRAM [Concomitant]
     Indication: ANXIETY
     Route: 048

REACTIONS (1)
  - Intestinal haemorrhage [Not Recovered/Not Resolved]
